FAERS Safety Report 9125007 (Version 1)
Quarter: 2013Q1

REPORT INFORMATION
  Report Type: Report from Study
  Country: JP (occurrence: JP)
  Receive Date: 20130227
  Receipt Date: 20130227
  Transmission Date: 20140127
  Serious: Yes (Hospitalization)
  Sender: FDA-Public Use
  Company Number: JP-ELI_LILLY_AND_COMPANY-JP201206006416

PATIENT
  Age: 69 Year
  Sex: Female
  Weight: 62 kg

DRUGS (6)
  1. TADALAFIL [Suspect]
     Indication: PULMONARY ARTERIAL HYPERTENSION
     Dosage: 40 MG, QD
     Route: 048
     Dates: start: 20120609, end: 20120611
  2. PREDONINE [Concomitant]
     Indication: INTERSTITIAL LUNG DISEASE
     Dosage: UNK
     Route: 048
  3. LANSOPRAZOLE [Concomitant]
     Dosage: UNK
     Route: 048
  4. RESPLEN [Concomitant]
     Indication: INTERSTITIAL LUNG DISEASE
     Dosage: UNK
     Route: 048
  5. TRACLEER [Concomitant]
     Indication: PULMONARY ARTERIAL HYPERTENSION
     Dosage: UNK
     Route: 048
  6. FLUTIDE [Concomitant]
     Indication: INTERSTITIAL LUNG DISEASE
     Dosage: UNK

REACTIONS (1)
  - Face oedema [Recovered/Resolved]
